FAERS Safety Report 7828608-1 (Version None)
Quarter: 2011Q4

REPORT INFORMATION
  Report Type: 
  Country: None (occurrence: None)
  Receive Date: 20111020
  Receipt Date: 20111018
  Transmission Date: 20120403
  Serious: Yes (Life-Threatening, Hospitalization, Other)
  Sender: FDA-Public Use
  Company Number: JP-B.I. PHARMACEUTICALS,INC./RIDGEFIELD-2011-BP-17600NB

PATIENT
  Sex: Male

DRUGS (7)
  1. COMELIAN [Concomitant]
     Indication: RENAL DISORDER
     Dosage: 300 MG
     Route: 048
     Dates: start: 20110709, end: 20110804
  2. EXFORGE [Concomitant]
     Indication: HYPERTENSION
     Route: 048
     Dates: start: 20110304, end: 20110722
  3. CARVEDILOL [Concomitant]
     Indication: CARDIAC FAILURE
     Dosage: 2.5 MG
     Route: 048
     Dates: start: 20110708, end: 20110804
  4. PRADAXA [Suspect]
     Indication: ATRIAL FIBRILLATION
     Dosage: 300 MG
     Route: 048
     Dates: start: 20110617, end: 20110712
  5. DIGOXIN [Concomitant]
     Indication: CARDIAC FAILURE
     Dosage: 0.125 MG
     Route: 048
     Dates: start: 20110708, end: 20110808
  6. TORSEMIDE [Concomitant]
     Indication: POLYURIA
     Dosage: 4 MG
     Route: 048
     Dates: start: 20110709, end: 20110723
  7. LASIX [Concomitant]
     Indication: POLYURIA
     Dosage: 20 MG
     Route: 048
     Dates: start: 20110607, end: 20110809

REACTIONS (4)
  - NAUSEA [None]
  - URTICARIA [None]
  - BLOOD PRESSURE DECREASED [None]
  - COAGULATION TEST ABNORMAL [None]
